FAERS Safety Report 8977108 (Version 2)
Quarter: 2014Q2

REPORT INFORMATION
  Report Type: Spontaneous
  Country: JP (occurrence: JP)
  Receive Date: 20121220
  Receipt Date: 20131120
  Transmission Date: 20141212
  Serious: Yes (Death, Other)
  Sender: FDA-Public Use
  Company Number: JP-TEVA-376720ISR

PATIENT
  Age: 74 Year
  Sex: Male

DRUGS (2)
  1. CARBOPLATIN [Suspect]
     Indication: SMALL CELL LUNG CANCER
     Route: 065
  2. ETOPOSIDE [Suspect]
     Indication: SMALL CELL LUNG CANCER
     Route: 065

REACTIONS (7)
  - Zygomycosis [Fatal]
  - Acute respiratory failure [Fatal]
  - Lymphangiosis carcinomatosa [Fatal]
  - Lymphangiosis carcinomatosa [Fatal]
  - Interstitial lung disease [Fatal]
  - Refractory cytopenia with unilineage dysplasia [Fatal]
  - Febrile neutropenia [Unknown]
